FAERS Safety Report 15523182 (Version 1)
Quarter: 2018Q4

REPORT INFORMATION
  Report Type: Spontaneous
  Country: US (occurrence: US)
  Receive Date: 20181019
  Receipt Date: 20181019
  Transmission Date: 20190205
  Serious: No
  Sender: FDA-Public Use
  Company Number: None

PATIENT
  Age: 71 Year
  Sex: Female
  Weight: 75.6 kg

DRUGS (1)
  1. AIMOVIG [Suspect]
     Active Substance: ERENUMAB-AOOE
     Indication: MIGRAINE
     Dosage: ?          QUANTITY:1 INJECTION(S);OTHER FREQUENCY:ONCE A MONTH;?
     Route: 058
     Dates: start: 20181009, end: 20181010

REACTIONS (7)
  - Malaise [None]
  - Hyperhidrosis [None]
  - Fatigue [None]
  - Pyrexia [None]
  - Migraine [None]
  - Pain [None]
  - Nausea [None]

NARRATIVE: CASE EVENT DATE: 20181010
